FAERS Safety Report 24411000 (Version 1)
Quarter: 2024Q4

REPORT INFORMATION
  Report Type: Spontaneous
  Country: US (occurrence: None)
  Receive Date: 20241007
  Receipt Date: 20241007
  Transmission Date: 20250115
  Serious: Yes (Hospitalization)
  Sender: Public
  Company Number: None

PATIENT
  Sex: Male

DRUGS (1)
  1. IMATINIB MESYLATE [Suspect]
     Active Substance: IMATINIB MESYLATE
     Indication: Acute myeloid leukaemia
     Dosage: FREQUENCY : DAILY;?
     Route: 048
     Dates: start: 202406

REACTIONS (2)
  - Chest pain [None]
  - Cardiac disorder [None]
